FAERS Safety Report 7040185-4 (Version None)
Quarter: 2010Q3

REPORT INFORMATION
  Report Type: 
  Country: None (occurrence: None)
  Receive Date: 20100929
  Receipt Date: 20100611
  Transmission Date: 20110219
  Serious: Yes (Other)
  Sender: FDA-Public Use
  Company Number: US-WYE-H15131210

PATIENT
  Age: 59 Year
  Sex: Female
  Weight: 85.81 kg

DRUGS (3)
  1. PRISTIQ [Suspect]
     Dosage: 50 MG 1X PER 1 DAY, ORAL
     Route: 048
     Dates: start: 20090723, end: 20090727
  2. XANAX [Concomitant]
  3. AMBIEN [Concomitant]

REACTIONS (1)
  - TREMOR [None]
